FAERS Safety Report 20929540 (Version 5)
Quarter: 2022Q3

REPORT INFORMATION
  Report Type: Report from Study
  Country: NL (occurrence: None)
  Receive Date: 20220608
  Receipt Date: 20220805
  Transmission Date: 20221026
  Serious: Yes (Hospitalization)
  Sender: FDA-Public Use
  Company Number: NL-ROCHE-3112116

PATIENT
  Age: 65 Year
  Sex: Male
  Weight: 80.9 kg

DRUGS (11)
  1. INVESTIGATIONAL PRODUCT [Suspect]
     Active Substance: INVESTIGATIONAL PRODUCT
     Indication: Colorectal cancer metastatic
     Dosage: MOST RECENT DOSE (35 MG) OF STUDY DRUG PRIOR TO AE: 31/MAY/2022, AT 12:08 PM AND 1:36 PM?TOTAL VOLUM
     Route: 042
     Dates: start: 20220531
  2. CIBISATAMAB [Suspect]
     Active Substance: CIBISATAMAB
     Indication: Colorectal cancer metastatic
     Dosage: MOST RECENT DOSE (100 MG) OF STUDY DRUG PRIOR TO AE: 31/MAY/2022, AT 2:56 PM AND 7:28 PM?TOTAL VOLUM
     Route: 042
     Dates: start: 20220531
  3. OBINUTUZUMAB [Suspect]
     Active Substance: OBINUTUZUMAB
     Indication: Colorectal cancer metastatic
     Dosage: MOST RECENT DOSE (2000 MG) OF STUDY DRUG PRIOR TO AE: 23/MAY/2022, AT 12:00 PM AND 7:30 PM?TOTAL VOL
     Route: 042
     Dates: start: 20220523
  4. DEXAMETHASONE [Concomitant]
     Active Substance: DEXAMETHASONE
     Indication: Premedication
     Route: 042
     Dates: start: 20220523, end: 20220523
  5. DEXAMETHASONE [Concomitant]
     Active Substance: DEXAMETHASONE
     Route: 042
     Dates: start: 20220531, end: 20220531
  6. DEXAMETHASONE [Concomitant]
     Active Substance: DEXAMETHASONE
     Route: 042
     Dates: start: 20220531, end: 20220531
  7. DEXAMETHASONE [Concomitant]
     Active Substance: DEXAMETHASONE
     Route: 042
     Dates: start: 20220601, end: 20220601
  8. IBUPROFEN [Concomitant]
     Active Substance: IBUPROFEN
     Indication: Premedication
     Route: 048
     Dates: start: 20220531, end: 20220531
  9. METOPROLOL [Concomitant]
     Active Substance: METOPROLOL
     Indication: Atrial fibrillation
     Route: 048
     Dates: start: 20170524
  10. ACETAMINOPHEN [Concomitant]
     Active Substance: ACETAMINOPHEN
     Route: 048
     Dates: start: 20220523, end: 20220523
  11. ACETAMINOPHEN [Concomitant]
     Active Substance: ACETAMINOPHEN
     Route: 048
     Dates: start: 20220531, end: 20220531

REACTIONS (1)
  - Cytokine release syndrome [Recovered/Resolved]

NARRATIVE: CASE EVENT DATE: 20220601
